FAERS Safety Report 18727813 (Version 1)
Quarter: 2021Q1

REPORT INFORMATION
  Report Type: Spontaneous
  Country: US (occurrence: US)
  Receive Date: 20210111
  Receipt Date: 20210111
  Transmission Date: 20210419
  Serious: Yes (Hospitalization, Other)
  Sender: FDA-Public Use
  Company Number: US-ASTRAZENECA-2021A001197

PATIENT
  Sex: Female
  Weight: 89.8 kg

DRUGS (112)
  1. GABAPENTIN. [Concomitant]
     Active Substance: GABAPENTIN
     Indication: EPILEPSY
  2. SAVELLA [Concomitant]
     Active Substance: MILNACIPRAN HYDROCHLORIDE
     Indication: ANALGESIC THERAPY
  3. GLIPIZIDE. [Concomitant]
     Active Substance: GLIPIZIDE
     Indication: DIABETES MELLITUS
  4. VITAMIN D [Concomitant]
     Active Substance: VITAMIN D NOS
     Indication: VITAMIN D DEFICIENCY
  5. LISINOPRIL. [Concomitant]
     Active Substance: LISINOPRIL
  6. BUPROPION. [Concomitant]
     Active Substance: BUPROPION
  7. TEMAZEPAM. [Concomitant]
     Active Substance: TEMAZEPAM
  8. PRILOSEC [Suspect]
     Active Substance: OMEPRAZOLE MAGNESIUM
     Indication: GASTROOESOPHAGEAL REFLUX DISEASE
     Dosage: GENERIC 20?40 MG
     Route: 065
     Dates: start: 20130114, end: 20140127
  9. HYDROXYZINE [Concomitant]
     Active Substance: HYDROXYZINE HYDROCHLORIDE
     Indication: INSOMNIA
  10. ATENOLOL. [Concomitant]
     Active Substance: ATENOLOL
     Indication: ANGINA PECTORIS
  11. ASPIRIN. [Concomitant]
     Active Substance: ASPIRIN
     Indication: PAIN
  12. HYDROMET [Concomitant]
     Active Substance: HOMATROPINE METHYLBROMIDE\HYDROCODONE BITARTRATE
  13. CIPROFLOXACIN. [Concomitant]
     Active Substance: CIPROFLOXACIN
  14. QNASL [Concomitant]
     Active Substance: BECLOMETHASONE DIPROPIONATE
  15. ESTRADIOL. [Concomitant]
     Active Substance: ESTRADIOL
  16. MUCUS RELIEF [Concomitant]
     Active Substance: GUAIFENESIN
  17. LEVOCETIRIZINE [Concomitant]
     Active Substance: LEVOCETIRIZINE
  18. PHENAZOPYRIDINE. [Concomitant]
     Active Substance: PHENAZOPYRIDINE
  19. PROMETHAZINE [Concomitant]
     Active Substance: PROMETHAZINE HYDROCHLORIDE
  20. POLYETHYLENE GLYCOL [Concomitant]
     Active Substance: POLYETHYLENE GLYCOLS
  21. MELOXICAM. [Concomitant]
     Active Substance: MELOXICAM
  22. CYMBALTA [Concomitant]
     Active Substance: DULOXETINE HYDROCHLORIDE
  23. PROTONIX [Suspect]
     Active Substance: PANTOPRAZOLE SODIUM
     Indication: GASTROOESOPHAGEAL REFLUX DISEASE
     Route: 065
     Dates: start: 20170414, end: 20171019
  24. ATENOLOL. [Concomitant]
     Active Substance: ATENOLOL
     Indication: HYPERTENSION
  25. AMLODIPINE BESYLATE. [Concomitant]
     Active Substance: AMLODIPINE BESYLATE
  26. MONTELUKAST [Concomitant]
     Active Substance: MONTELUKAST SODIUM
  27. ADVAIR DISKUS [Concomitant]
     Active Substance: FLUTICASONE PROPIONATE\SALMETEROL XINAFOATE
  28. AMITRIPTYLINE [Concomitant]
     Active Substance: AMITRIPTYLINE
  29. TRIAMCINOLONE [Concomitant]
     Active Substance: TRIAMCINOLONE
  30. PRAVASTATIN. [Concomitant]
     Active Substance: PRAVASTATIN
  31. IPRATROPIUM [Concomitant]
     Active Substance: IPRATROPIUM
  32. LUNESTA [Concomitant]
     Active Substance: ESZOPICLONE
  33. WARFARIN [Concomitant]
     Active Substance: WARFARIN
  34. BACTROBAN [Concomitant]
     Active Substance: MUPIROCIN\MUPIROCIN CALCIUM
  35. LYRICA [Concomitant]
     Active Substance: PREGABALIN
  36. PRILOSEC [Suspect]
     Active Substance: OMEPRAZOLE MAGNESIUM
     Indication: GASTROOESOPHAGEAL REFLUX DISEASE
     Dosage: GENERIC 20?40 MG
     Route: 065
     Dates: start: 20080902, end: 20111024
  37. FLUCONAZOLE. [Concomitant]
     Active Substance: FLUCONAZOLE
     Indication: INFLUENZA
  38. BURDOCK ROOT TEA [Concomitant]
     Indication: CYSTIC FIBROSIS RESPIRATORY INFECTION SUPPRESSION
  39. FLUVIRIN NOS [Concomitant]
     Active Substance: INFLUENZA VIRUS VACCINE
  40. ZOSTAVAX [Concomitant]
     Active Substance: VARICELLA-ZOSTER VIRUS STRAIN OKA/MERCK LIVE ANTIGEN
  41. DULERA [Concomitant]
     Active Substance: FORMOTEROL FUMARATE DIHYDRATE\MOMETASONE FUROATE
  42. FML [Concomitant]
     Active Substance: FLUOROMETHOLONE
  43. DOXYCYCLINE HYCLATE. [Concomitant]
     Active Substance: DOXYCYCLINE HYCLATE
  44. CHERATUSSIN [Concomitant]
     Active Substance: AMMONIUM CHLORIDE\DEXTROMETHORPHAN\SODIUM CITRATE
  45. ALENDRONATE [Concomitant]
     Active Substance: ALENDRONATE SODIUM
  46. PLAQUENIL [Concomitant]
     Active Substance: HYDROXYCHLOROQUINE SULFATE
  47. PRILOSEC [Suspect]
     Active Substance: OMEPRAZOLE MAGNESIUM
     Indication: GASTROOESOPHAGEAL REFLUX DISEASE
     Dosage: GENERIC 20?40 MG
     Route: 065
     Dates: start: 20140507, end: 20161019
  48. PREVACID [Suspect]
     Active Substance: LANSOPRAZOLE
     Indication: GASTROOESOPHAGEAL REFLUX DISEASE
     Route: 065
     Dates: start: 1999, end: 2004
  49. HYDROXYZINE [Concomitant]
     Active Substance: HYDROXYZINE HYDROCHLORIDE
     Indication: ANXIETY
  50. DANDELION ROOT TEA [Concomitant]
     Indication: CYSTIC FIBROSIS RESPIRATORY INFECTION SUPPRESSION
  51. GINGER TEA [Concomitant]
     Active Substance: GINGER
     Indication: CYSTIC FIBROSIS RESPIRATORY INFECTION SUPPRESSION
  52. AMOX?CLAV [Concomitant]
     Active Substance: AMOXICILLIN\CLAVULANATE POTASSIUM
  53. BETAMETHASONE. [Concomitant]
     Active Substance: BETAMETHASONE
  54. METHOCARBAMOL. [Concomitant]
     Active Substance: METHOCARBAMOL
  55. SODIUM CHLORIDE. [Concomitant]
     Active Substance: SODIUM CHLORIDE
  56. LIDOCAINE. [Concomitant]
     Active Substance: LIDOCAINE
  57. FERROUS SULFATE. [Concomitant]
     Active Substance: FERROUS SULFATE
  58. CETIRIZINE [Concomitant]
     Active Substance: CETIRIZINE HYDROCHLORIDE
  59. OXYCODONE/ACETAMINOPHN [Concomitant]
  60. METHYLPREDNISOLONE. [Concomitant]
     Active Substance: METHYLPREDNISOLONE
  61. CLINDAMYCIN. [Concomitant]
     Active Substance: CLINDAMYCIN
  62. HYDROCODONE/HOMATROPINE [Concomitant]
     Active Substance: HOMATROPINE METHYLBROMIDE\HYDROCODONE BITARTRATE
  63. GLUCOSE [Concomitant]
     Active Substance: DEXTROSE
  64. CEFDINIR. [Concomitant]
     Active Substance: CEFDINIR
  65. ACCOLATE [Concomitant]
     Active Substance: ZAFIRLUKAST
  66. ACTONEL [Concomitant]
     Active Substance: RISEDRONATE SODIUM
  67. SULFA [Concomitant]
     Active Substance: UNSPECIFIED INGREDIENT
  68. PRILOSEC [Suspect]
     Active Substance: OMEPRAZOLE MAGNESIUM
     Indication: GASTROOESOPHAGEAL REFLUX DISEASE
     Dosage: 15?30 MG DAILY
     Route: 048
     Dates: start: 1999, end: 2004
  69. PROTONIX [Suspect]
     Active Substance: PANTOPRAZOLE SODIUM
     Indication: GASTROOESOPHAGEAL REFLUX DISEASE
     Dosage: GENERIC
     Route: 065
     Dates: start: 20170324, end: 20170625
  70. TRAMADOL. [Concomitant]
     Active Substance: TRAMADOL
     Indication: ANALGESIC THERAPY
  71. MORINGA TEA [Concomitant]
     Indication: CYSTIC FIBROSIS RESPIRATORY INFECTION SUPPRESSION
  72. TYLENOL [Concomitant]
     Active Substance: ACETAMINOPHEN
     Indication: ANALGESIC THERAPY
  73. FAMOTIDINE. [Concomitant]
     Active Substance: FAMOTIDINE
  74. HYDROXYZINE PAMOATE. [Concomitant]
     Active Substance: HYDROXYZINE PAMOATE
  75. METHOTREXATE. [Concomitant]
     Active Substance: METHOTREXATE
  76. VALSARTAN. [Concomitant]
     Active Substance: VALSARTAN
  77. DOCUSATE SODIUM. [Concomitant]
     Active Substance: DOCUSATE SODIUM
  78. VIRTUSSIN AC [Concomitant]
     Active Substance: CODEINE PHOSPHATE\GUAIFENESIN
  79. BENZONATATE. [Concomitant]
     Active Substance: BENZONATATE
  80. PROAIR HFA [Concomitant]
     Active Substance: ALBUTEROL SULFATE
  81. PREVNAR [Concomitant]
     Active Substance: PNEUMOCOCCAL 7-VALENT CONJUGATE VACCINE (DIPHTHERIA CRM197 PROTEIN)
  82. ACETAMINOPHEN/COD [Concomitant]
  83. HALOBETASOL [Concomitant]
     Active Substance: HALOBETASOL PROPIONATE
  84. PROTONIX [Suspect]
     Active Substance: PANTOPRAZOLE SODIUM
     Indication: GASTROOESOPHAGEAL REFLUX DISEASE
     Dosage: GENERIC
     Route: 065
     Dates: start: 20180604
  85. ATORVASTATIN [Concomitant]
     Active Substance: ATORVASTATIN
     Indication: BLOOD CHOLESTEROL INCREASED
  86. HYDROCODONE [Concomitant]
     Active Substance: HYDROCODONE
     Indication: ANALGESIC THERAPY
  87. HYDROXYCHLOROQUINE [Concomitant]
     Active Substance: HYDROXYCHLOROQUINE
     Indication: ARTHRITIS
  88. LEMON TEA [Concomitant]
     Indication: CYSTIC FIBROSIS RESPIRATORY INFECTION SUPPRESSION
  89. IRON [Concomitant]
     Active Substance: IRON
     Indication: IRON DEFICIENCY
  90. PREDNISONE. [Concomitant]
     Active Substance: PREDNISONE
  91. NITROFURANTOIN. [Concomitant]
     Active Substance: NITROFURANTOIN
  92. AZELASTINE. [Concomitant]
     Active Substance: AZELASTINE HYDROCHLORIDE
  93. CYCLOBENZAPRINE. [Concomitant]
     Active Substance: CYCLOBENZAPRINE
  94. CLARITHROMYCIN. [Concomitant]
     Active Substance: CLARITHROMYCIN
  95. ZOLPIDEM [Concomitant]
     Active Substance: ZOLPIDEM TARTRATE
  96. DICLOFENAC SODIUM. [Concomitant]
     Active Substance: DICLOFENAC SODIUM
  97. METFORMIN [Concomitant]
     Active Substance: METFORMIN HYDROCHLORIDE
  98. CEPHALEXIN. [Concomitant]
     Active Substance: CEPHALEXIN
  99. ONDANSETRON [Concomitant]
     Active Substance: ONDANSETRON
  100. HEMATINIC [Concomitant]
     Active Substance: CYANOCOBALAMIN\FOLIC ACID\IRON\MAMMAL LIVER
  101. ZYRTEC [Concomitant]
     Active Substance: CETIRIZINE HYDROCHLORIDE
  102. PRILOSEC [Suspect]
     Active Substance: OMEPRAZOLE MAGNESIUM
     Indication: GASTROOESOPHAGEAL REFLUX DISEASE
     Route: 048
     Dates: start: 20070817, end: 20080801
  103. GABAPENTIN. [Concomitant]
     Active Substance: GABAPENTIN
     Indication: ANALGESIC THERAPY
  104. TIZANIDINE. [Concomitant]
     Active Substance: TIZANIDINE
     Indication: MUSCLE RELAXANT THERAPY
  105. NAPROXEN. [Concomitant]
     Active Substance: NAPROXEN
     Indication: INFLAMMATION
  106. VENTOLIN HFA [Concomitant]
     Active Substance: ALBUTEROL SULFATE
  107. ERYTHROMYCIN. [Concomitant]
     Active Substance: ERYTHROMYCIN
  108. ACCU?CHEK AVIVA [Concomitant]
  109. LODRANE D [Concomitant]
     Active Substance: BROMPHENIRAMINE MALEATE\PSEUDOEPHEDRINE HYDROCHLORIDE
  110. TUSSIONEX PENNKINETIC [Concomitant]
     Active Substance: CHLORPHENIRAMINE\HYDROCODONE
  111. CLODERM [Concomitant]
     Active Substance: CLOCORTOLONE PIVALATE
  112. ASTEPRO [Concomitant]
     Active Substance: AZELASTINE HYDROCHLORIDE

REACTIONS (1)
  - Chronic kidney disease [Not Recovered/Not Resolved]
